FAERS Safety Report 8358197-7 (Version None)
Quarter: 2012Q2

REPORT INFORMATION
  Report Type: 
  Country: None (occurrence: None)
  Receive Date: 20120514
  Receipt Date: 20120504
  Transmission Date: 20120825
  Serious: Yes (Hospitalization, Congenital Anomaly)
  Sender: FDA-Public Use
  Company Number: US-GLAXOSMITHKLINE-A0977195A

PATIENT
  Sex: Male
  Weight: 3.5 kg

DRUGS (2)
  1. KLONOPIN [Concomitant]
  2. PAXIL [Suspect]
     Indication: DEPRESSION
     Route: 064

REACTIONS (5)
  - PULMONARY HAEMOSIDEROSIS [None]
  - AUTISM SPECTRUM DISORDER [None]
  - PULMONARY HAEMORRHAGE [None]
  - HYPOXIC-ISCHAEMIC ENCEPHALOPATHY [None]
  - FOETAL EXPOSURE DURING PREGNANCY [None]
